FAERS Safety Report 16003857 (Version 2)
Quarter: 2019Q1

REPORT INFORMATION
  Report Type: Spontaneous
  Country: PT (occurrence: PT)
  Receive Date: 20190226
  Receipt Date: 20190308
  Transmission Date: 20190418
  Serious: Yes (Disabling)
  Sender: FDA-Public Use
  Company Number: PT-AUROBINDO-AUR-APL-2019-009246

PATIENT

DRUGS (2)
  1. VALTREX [Suspect]
     Active Substance: VALACYCLOVIR HYDROCHLORIDE
     Indication: ORAL HERPES
     Route: 065
  2. VALACICLOVIR AUROBINDO [Suspect]
     Active Substance: VALACYCLOVIR HYDROCHLORIDE
     Indication: ORAL HERPES
     Dosage: 1 CP 12/12H
     Route: 048
     Dates: start: 20190205, end: 20190206

REACTIONS (4)
  - Headache [Unknown]
  - Nausea [Unknown]
  - Angiopathy [Unknown]
  - Photophobia [Unknown]

NARRATIVE: CASE EVENT DATE: 20190205
